FAERS Safety Report 7817564-8 (Version None)
Quarter: 2011Q4

REPORT INFORMATION
  Report Type: 
  Country: None (occurrence: None)
  Receive Date: 20111017
  Receipt Date: 20111007
  Transmission Date: 20120403
  Serious: Yes (Hospitalization)
  Sender: FDA-Public Use
  Company Number: PHHY2011NL89491

PATIENT
  Sex: Male
  Weight: 78 kg

DRUGS (2)
  1. SOTALOL HCL [Interacting]
     Dosage: 40 MG, ONCE/SINGLE
  2. GILENYA [Suspect]
     Indication: MULTIPLE SCLEROSIS
     Dosage: 0.5 MG, QD
     Route: 048
     Dates: start: 20111006, end: 20111007

REACTIONS (10)
  - CHEST DISCOMFORT [None]
  - PALPITATIONS [None]
  - ATRIAL FIBRILLATION [None]
  - DRUG INTERACTION [None]
  - TACHYCARDIA [None]
  - FEELING HOT [None]
  - GAMMA-GLUTAMYLTRANSFERASE INCREASED [None]
  - ABDOMINAL PAIN [None]
  - CHEST PAIN [None]
  - PARAESTHESIA [None]
